FAERS Safety Report 19555472 (Version 1)
Quarter: 2021Q3

REPORT INFORMATION
  Report Type: Spontaneous
  Country: US (occurrence: US)
  Receive Date: 20210715
  Receipt Date: 20210715
  Transmission Date: 20211014
  Serious: Yes (Hospitalization)
  Sender: FDA-Public Use
  Company Number: US-LUPIN PHARMACEUTICALS INC.-2021-11892

PATIENT
  Age: 4 Week
  Sex: Male

DRUGS (2)
  1. TRIAMCINOLONE ACETONIDE. [Suspect]
     Active Substance: TRIAMCINOLONE ACETONIDE
     Indication: PUSTULAR PSORIASIS
     Dosage: UNK 0.025 PERCENT OINTMENT
     Route: 061
  2. FLUOCINOLONE ACETONIDE. [Suspect]
     Active Substance: FLUOCINOLONE ACETONIDE
     Indication: PUSTULAR PSORIASIS
     Dosage: UNK? OIL 0.01 PERCENT
     Route: 061

REACTIONS (1)
  - Drug ineffective [Unknown]
